FAERS Safety Report 4933776-5 (Version None)
Quarter: 2006Q1

REPORT INFORMATION
  Report Type: 
  Country: None (occurrence: None)
  Receive Date: 20060306
  Receipt Date: 20051031
  Transmission Date: 20060701
  Serious: Yes (Other)
  Sender: FDA-Public Use
  Company Number: US-MERCK-0511USA00349

PATIENT
  Age: 46 Year
  Sex: Male
  Weight: 109 kg

DRUGS (17)
  1. VIOXX [Suspect]
     Indication: ARTHRITIS
     Route: 048
     Dates: start: 20001010, end: 20031201
  2. VIOXX [Suspect]
     Indication: PAIN
     Route: 048
     Dates: start: 20001010, end: 20031201
  3. NEURONTIN [Concomitant]
     Indication: CONVULSION
     Route: 048
  4. BUSPAR [Concomitant]
     Indication: NERVOUSNESS
     Route: 048
  5. ACTOS [Concomitant]
     Indication: DIABETES MELLITUS
     Route: 048
  6. NEXIUM [Concomitant]
     Indication: GASTRIC DISORDER
     Route: 048
  7. GLUCOPHAGE [Concomitant]
     Indication: DIABETES MELLITUS
     Route: 048
  8. LISINOPRIL-BC [Concomitant]
     Indication: HYPERTENSION
     Route: 048
     Dates: start: 20031010
  9. BISOPROLOL RATIOPHARM [Concomitant]
     Indication: HYPERTENSION
     Route: 048
     Dates: start: 20001010, end: 20020824
  10. BISOPROLOL RATIOPHARM [Concomitant]
     Indication: ERECTILE DYSFUNCTION
     Route: 048
     Dates: start: 20001010, end: 20020824
  11. ZOCOR [Concomitant]
     Indication: BLOOD CHOLESTEROL INCREASED
     Route: 048
  12. ASPIRIN [Concomitant]
     Indication: PROPHYLAXIS
     Route: 048
     Dates: start: 19990815
  13. CELEBREX [Concomitant]
     Indication: PAIN
     Route: 048
     Dates: start: 20010101, end: 20010101
  14. CELEBREX [Concomitant]
     Indication: ARTHRITIS
     Route: 048
     Dates: start: 20010101, end: 20010101
  15. VASOTEC RPD [Concomitant]
     Indication: HYPERTENSION
     Route: 048
     Dates: start: 20001010, end: 20020801
  16. NIFEDIPINE [Concomitant]
     Route: 048
     Dates: start: 20010705, end: 20040728
  17. FUROSEMIDE [Concomitant]
     Indication: HYPERTENSION
     Route: 048
     Dates: start: 20001010, end: 20020824

REACTIONS (3)
  - CHEST PAIN [None]
  - DYSPNOEA [None]
  - MYOCARDIAL INFARCTION [None]
